FAERS Safety Report 6555516-9 (Version None)
Quarter: 2010Q1

REPORT INFORMATION
  Report Type: 
  Country: None (occurrence: None)
  Receive Date: 20100125
  Receipt Date: 20100111
  Transmission Date: 20100710
  Serious: Yes (Death, Hospitalization, Disabling)
  Sender: FDA-Public Use
  Company Number: 2007AL004518

PATIENT
  Age: 72 Year
  Sex: Female

DRUGS (4)
  1. MIRTAZAPINE [Suspect]
     Indication: DEPRESSION
     Dosage: 30MG;QD;PO
     Route: 048
     Dates: start: 20070907
  2. RISPERIDONE [Concomitant]
  3. LORAZEPAM [Concomitant]
  4. QUETIAPINE [Concomitant]

REACTIONS (1)
  - CEREBROVASCULAR ACCIDENT [None]
